FAERS Safety Report 19443590 (Version 1)
Quarter: 2021Q2

REPORT INFORMATION
  Report Type: Other
  Country: US (occurrence: US)
  Receive Date: 20210621
  Receipt Date: 20210621
  Transmission Date: 20210717
  Serious: No
  Sender: FDA-Public Use
  Company Number: US-ROCHE-2845706

PATIENT
  Age: 45 Year
  Sex: Male
  Weight: 97.61 kg

DRUGS (3)
  1. OCREVUS [Suspect]
     Active Substance: OCRELIZUMAB
     Route: 042
  2. OCREVUS [Suspect]
     Active Substance: OCRELIZUMAB
     Indication: RELAPSING MULTIPLE SCLEROSIS
     Dosage: DOT:17/DEC/2019, 30/DEC/2019, 25/JUN/2020, 16/DEC/2020
     Route: 042
     Dates: start: 2019
  3. COVID?19 VACCINE [Concomitant]

REACTIONS (1)
  - COVID-19 [Recovered/Resolved]

NARRATIVE: CASE EVENT DATE: 20210518
